FAERS Safety Report 6180760-2 (Version None)
Quarter: 2009Q2

REPORT INFORMATION
  Report Type: 
  Country: None (occurrence: None)
  Receive Date: 20090506
  Receipt Date: 20081023
  Transmission Date: 20091009
  Serious: No
  Sender: FDA-Public Use
  Company Number: A0755289A

PATIENT
  Age: 77 Year
  Sex: Female

DRUGS (2)
  1. FLULAVAL [Suspect]
     Indication: PROPHYLAXIS
     Dosage: .5ML SINGLE DOSE
     Route: 065
     Dates: start: 20081020, end: 20081020
  2. AMOXICILLIN [Suspect]
     Dosage: 875MG TWICE PER DAY
     Dates: start: 20081020, end: 20081022

REACTIONS (1)
  - PRURITUS [None]
